FAERS Safety Report 4351389-3 (Version None)
Quarter: 2004Q2

REPORT INFORMATION
  Report Type: 
  Country: None (occurrence: None)
  Receive Date: 20040428
  Receipt Date: 20040409
  Transmission Date: 20050107
  Serious: Yes (Disabling, Other)
  Sender: FDA-Public Use
  Company Number: USA040464531

PATIENT
  Age: 73 Year
  Sex: Female
  Weight: 103 kg

DRUGS (3)
  1. HUMULIN 70/30 [Suspect]
     Dosage: 87 U DAY
     Dates: start: 19890101
  2. COUMADIN [Concomitant]
  3. LANOXIN [Concomitant]

REACTIONS (4)
  - CATARACT [None]
  - DEAFNESS [None]
  - VISUAL ACUITY REDUCED [None]
  - WEIGHT INCREASED [None]
